FAERS Safety Report 15259881 (Version 1)
Quarter: 2018Q3

REPORT INFORMATION
  Report Type: Spontaneous
  Country: US (occurrence: US)
  Receive Date: 20180809
  Receipt Date: 20180809
  Transmission Date: 20181010
  Serious: No
  Sender: FDA-Public Use
  Company Number: US-PFIZER INC-2018313421

PATIENT
  Sex: Female

DRUGS (3)
  1. IBRANCE [Suspect]
     Active Substance: PALBOCICLIB
     Dosage: 125 MG, CYCLIC (21 DAYS ON 7 DAYS OFF)
     Dates: start: 20180423, end: 2018
  2. ANASTROZOLE. [Suspect]
     Active Substance: ANASTROZOLE
     Dosage: UNK
  3. IBRANCE [Suspect]
     Active Substance: PALBOCICLIB
     Dosage: 100 MG, CYCLIC
     Dates: start: 2018, end: 20180703

REACTIONS (4)
  - Diarrhoea [Recovering/Resolving]
  - Rash pruritic [Recovering/Resolving]
  - Neutrophil count decreased [Not Recovered/Not Resolved]
  - Functional gastrointestinal disorder [Unknown]

NARRATIVE: CASE EVENT DATE: 2018
